FAERS Safety Report 15756501 (Version 1)
Quarter: 2018Q4

REPORT INFORMATION
  Report Type: Spontaneous
  Country: US (occurrence: US)
  Receive Date: 20181222
  Receipt Date: 20181222
  Transmission Date: 20190205
  Serious: No
  Sender: FDA-Public Use
  Company Number: None

PATIENT
  Age: 24 Year
  Sex: Female
  Weight: 93.6 kg

DRUGS (4)
  1. JUNEL [Concomitant]
     Active Substance: ETHINYL ESTRADIOL\NORETHINDRONE ACETATE
  2. ARIPIPRAZOLE 2MG [Suspect]
     Active Substance: ARIPIPRAZOLE
     Indication: DEPRESSION
     Dates: start: 20181218, end: 20181220
  3. ARIPIPRAZOLE 2MG [Suspect]
     Active Substance: ARIPIPRAZOLE
     Indication: PANIC DISORDER
     Dates: start: 20181218, end: 20181220
  4. PRISTIQ EXTENDED-RELEASE [Concomitant]
     Active Substance: DESVENLAFAXINE SUCCINATE

REACTIONS (9)
  - Confusional state [None]
  - Depression [None]
  - Anxiety [None]
  - Paranoia [None]
  - Asthenia [None]
  - Fatigue [None]
  - Dizziness [None]
  - Nausea [None]
  - Constipation [None]

NARRATIVE: CASE EVENT DATE: 20181219
